FAERS Safety Report 7864966-X (Version None)
Quarter: 2011Q4

REPORT INFORMATION
  Report Type: 
  Country: None (occurrence: None)
  Receive Date: 20111028
  Receipt Date: 20100924
  Transmission Date: 20120403
  Serious: No
  Sender: FDA-Public Use
  Company Number: US-GLAXOSMITHKLINE-A0883228A

PATIENT
  Age: 59 Year
  Sex: Female

DRUGS (8)
  1. ALLEGRA [Concomitant]
  2. MULTI-VITAMINS [Concomitant]
  3. PROAIR HFA [Concomitant]
  4. FLOVENT [Suspect]
     Indication: ASTHMA
     Dosage: 1PUFF TWICE PER DAY
     Route: 055
     Dates: start: 20100825
  5. CRESTOR [Concomitant]
  6. SYNTHROID [Concomitant]
  7. ADVAIR DISKUS 100/50 [Suspect]
     Indication: ASTHMA
     Dosage: 1PUFF TWICE PER DAY
     Route: 055
     Dates: start: 20040901, end: 20100825
  8. NEXIUM [Concomitant]

REACTIONS (8)
  - DIARRHOEA [None]
  - MICTURITION URGENCY [None]
  - MUSCLE SPASMS [None]
  - ORAL FUNGAL INFECTION [None]
  - TENDERNESS [None]
  - BLOOD PRESSURE INCREASED [None]
  - PRODUCTIVE COUGH [None]
  - HYPERHIDROSIS [None]
